FAERS Safety Report 8217569-1 (Version None)
Quarter: 2012Q1

REPORT INFORMATION
  Report Type: 
  Country: None (occurrence: None)
  Receive Date: 20120319
  Receipt Date: 20120319
  Transmission Date: 20120608
  Serious: Yes (Life-Threatening, Other)
  Sender: FDA-Public Use
  Company Number: None

PATIENT
  Age: 28 Year
  Sex: Male
  Weight: 79.378 kg

DRUGS (1)
  1. GABAPENTIN [Suspect]
     Indication: PAIN
     Dosage: 300 MG
     Route: 048
     Dates: start: 20120305, end: 20120316

REACTIONS (11)
  - ABNORMAL BEHAVIOUR [None]
  - ANXIETY [None]
  - DIZZINESS [None]
  - ANGER [None]
  - DRY MOUTH [None]
  - HOSTILITY [None]
  - SUICIDAL IDEATION [None]
  - MOOD SWINGS [None]
  - INSOMNIA [None]
  - JOINT SWELLING [None]
  - OEDEMA PERIPHERAL [None]
